FAERS Safety Report 9452867 (Version 3)
Quarter: 2013Q4

REPORT INFORMATION
  Report Type: Spontaneous
  Country: JP (occurrence: JP)
  Receive Date: 20130812
  Receipt Date: 20131030
  Transmission Date: 20140711
  Serious: Yes (Hospitalization, Other)
  Sender: FDA-Public Use
  Company Number: JP-PFIZER INC-2013231816

PATIENT
  Age: 70 Year
  Sex: Female
  Weight: 75 kg

DRUGS (3)
  1. LYRICA [Suspect]
     Indication: POST HERPETIC NEURALGIA
     Dosage: 150 MG/DAY
     Route: 048
     Dates: start: 20130604, end: 20130610
  2. TRAMCET [Concomitant]
     Indication: POST HERPETIC NEURALGIA
     Dosage: UNK
     Dates: start: 201307
  3. CELECOX [Concomitant]
     Indication: POST HERPETIC NEURALGIA
     Dosage: 100 MG, 2X/DAY
     Route: 048
     Dates: start: 20130528, end: 20130610

REACTIONS (3)
  - Drug eruption [Recovered/Resolved]
  - Rash papular [Recovered/Resolved]
  - Malaise [Unknown]
